FAERS Safety Report 5214106-0 (Version None)
Quarter: 2007Q1

REPORT INFORMATION
  Report Type: 
  Country: None (occurrence: None)
  Receive Date: 20070122
  Receipt Date: 20070116
  Transmission Date: 20070707
  Serious: Yes (Other)
  Sender: FDA-Public Use
  Company Number: DE-BRACCO-BRO-010901

PATIENT
  Sex: Female

DRUGS (1)
  1. MULTIHANCE [Suspect]
     Indication: NUCLEAR MAGNETIC RESONANCE IMAGING BRAIN
     Route: 042
     Dates: start: 20061005, end: 20061005

REACTIONS (6)
  - ANGIOEDEMA [None]
  - CIRCULATORY COLLAPSE [None]
  - DYSPNOEA [None]
  - OCULAR HYPERAEMIA [None]
  - RASH [None]
  - SWELLING FACE [None]
